FAERS Safety Report 9428196 (Version 3)
Quarter: 2013Q4

REPORT INFORMATION
  Report Type: Spontaneous
  Country: US (occurrence: US)
  Receive Date: 20130730
  Receipt Date: 20131112
  Transmission Date: 20140711
  Serious: Yes (Death, Life-Threatening, Hospitalization, Other)
  Sender: FDA-Public Use
  Company Number: US-009507513-1307USA013499

PATIENT
  Age: 80 Year
  Sex: 0
  Weight: 77.55 kg

DRUGS (13)
  1. TEMODAR [Suspect]
     Indication: GLIOBLASTOMA
     Dosage: 1 CAPSULE WITH2-5 MG CAPSULES DAILY TO MAKE 150 MG DAILY FOR 42 DAYS
     Route: 048
     Dates: start: 20130509
  2. TEMODAR [Suspect]
     Indication: GLIOBLASTOMA
     Dosage: TAKE 2 CAP WITH 1-A40 MG TO MAKE 150 MG DAILY FOR 42 DAYS
     Route: 048
     Dates: start: 20130509
  3. SIMVASTATIN TABLETS, USP [Concomitant]
     Dosage: 20 MG, QD
     Route: 048
  4. LOSARTAN POTASSIUM TABLETS [Concomitant]
     Dosage: 50 MG, QD
     Route: 048
  5. OMEPRAZOLE [Concomitant]
     Dosage: 20 MG, QD
     Route: 048
  6. DEXAMETHASONE [Concomitant]
     Dosage: 2 MG, BID
     Route: 048
  7. DEXAMETHASONE [Concomitant]
     Dosage: 8 MG, QD
     Route: 048
  8. DEXAMETHASONE [Concomitant]
     Dosage: 4 MG, TID
     Route: 048
  9. ASPIRIN [Concomitant]
     Dosage: 325 MG, QD
     Route: 048
  10. LEVETIRACETAM [Concomitant]
     Dosage: 500 MG, BID
     Route: 048
  11. OXYBUTYNIN [Concomitant]
     Dosage: 5 MG, QD
     Route: 048
  12. METOPROLOL TARTRATE [Concomitant]
     Dosage: 25 MG, BID
     Route: 048
  13. ALPHAGAN [Concomitant]
     Dosage: 1 DF, HS
     Route: 047

REACTIONS (5)
  - Glioblastoma [Fatal]
  - Confusional state [Not Recovered/Not Resolved]
  - Fatigue [Not Recovered/Not Resolved]
  - Constipation [Unknown]
  - Anaemia [Unknown]
